FAERS Safety Report 23655394 (Version 1)
Quarter: 2024Q1

REPORT INFORMATION
  Report Type: Other
  Country: US (occurrence: None)
  Receive Date: 20240320
  Receipt Date: 20240320
  Transmission Date: 20240410
  Serious: Yes (Hospitalization)
  Sender: FDA-Public Use
  Company Number: US-ROCHE-3526391

PATIENT
  Age: 76 Year
  Sex: Male
  Weight: 95.34 kg

DRUGS (1)
  1. OCREVUS [Suspect]
     Active Substance: OCRELIZUMAB
     Indication: Relapsing multiple sclerosis
     Dosage: THEN 600MG EVERY 6 MONTHS
     Route: 042
     Dates: start: 2022

REACTIONS (3)
  - Hypoaesthesia [Not Recovered/Not Resolved]
  - Muscle tightness [Recovered/Resolved]
  - COVID-19 [Unknown]

NARRATIVE: CASE EVENT DATE: 20240201
